FAERS Safety Report 4333003-6 (Version None)
Quarter: 2004Q2

REPORT INFORMATION
  Report Type: 
  Country: None (occurrence: None)
  Receive Date: 20040406
  Receipt Date: 20040330
  Transmission Date: 20050107
  Serious: Yes (Hospitalization)
  Sender: FDA-Public Use
  Company Number: PHBS2004FI04259

PATIENT
  Age: 63 Year
  Sex: Male

DRUGS (4)
  1. PARLODEL [Suspect]
     Indication: PARKINSON'S DISEASE
     Dosage: 10 MG/DAY
     Route: 048
     Dates: end: 20031127
  2. MADOPAR [Concomitant]
     Dosage: LEVO 100 / BENZ 25/QID
     Route: 048
  3. MADOPAR [Concomitant]
     Dosage: LEVO 100 / BENZ 25 MG/DAY
     Route: 048
  4. SIFROL [Concomitant]
     Dosage: 0.088 MG/DAY

REACTIONS (5)
  - C-REACTIVE PROTEIN INCREASED [None]
  - DYSPNOEA [None]
  - PLEURAL EFFUSION [None]
  - RED BLOOD CELL SEDIMENTATION RATE INCREASED [None]
  - URINARY TRACT DISORDER [None]
